FAERS Safety Report 6880827-7 (Version None)
Quarter: 2010Q3

REPORT INFORMATION
  Report Type: 
  Country: None (occurrence: None)
  Receive Date: 20100728
  Receipt Date: 20100722
  Transmission Date: 20110219
  Serious: Yes (Other)
  Sender: FDA-Public Use
  Company Number: US-ALLERGAN-1009552US

PATIENT
  Sex: Male

DRUGS (2)
  1. ACUVAIL [Suspect]
     Indication: POSTOPERATIVE CARE
  2. PRED FORTE [Suspect]
     Indication: POSTOPERATIVE CARE

REACTIONS (3)
  - EYE INFECTION [None]
  - OCULAR HYPERAEMIA [None]
  - SUPERFICIAL INJURY OF EYE [None]
